FAERS Safety Report 18857839 (Version 1)
Quarter: 2021Q1

REPORT INFORMATION
  Report Type: Spontaneous
  Country: PT (occurrence: PT)
  Receive Date: 20210208
  Receipt Date: 20210208
  Transmission Date: 20210420
  Serious: Yes (Other)
  Sender: FDA-Public Use
  Company Number: PT-LUPIN PHARMACEUTICALS INC.-2021-01333

PATIENT
  Age: 70 Year
  Sex: Male

DRUGS (3)
  1. ERTAPENEM. [Concomitant]
     Active Substance: ERTAPENEM SODIUM
     Indication: RHODOCOCCUS INFECTION
     Dosage: UNK
     Route: 065
  2. GENTAMYCINE [GENTAMICIN SULFATE] [Concomitant]
     Active Substance: GENTAMICIN SULFATE
     Indication: RHODOCOCCUS INFECTION
     Dosage: UNK
     Route: 065
     Dates: start: 2018, end: 201901
  3. LINEZOLID. [Suspect]
     Active Substance: LINEZOLID
     Indication: RHODOCOCCUS INFECTION
     Dosage: UNK
     Route: 065
     Dates: start: 2018, end: 201807

REACTIONS (1)
  - Myelosuppression [Unknown]
